FAERS Safety Report 9397603 (Version 1)
Quarter: 2013Q3

REPORT INFORMATION
  Report Type: Spontaneous
  Country: US (occurrence: None)
  Receive Date: 20130711
  Receipt Date: 20130711
  Transmission Date: 20140515
  Serious: Yes (Hospitalization)
  Sender: FDA-Public Use
  Company Number: None

PATIENT
  Age: 61 Year
  Sex: Male
  Weight: 118 kg

DRUGS (8)
  1. VANCOMYCIN [Suspect]
     Indication: BACTERAEMIA
     Dosage: Q24H
     Route: 042
     Dates: start: 20130313, end: 20130315
  2. VANCOMYCIN [Suspect]
     Indication: ARTHRITIS BACTERIAL
     Dosage: Q24H
     Route: 042
     Dates: start: 20130313, end: 20130315
  3. RIFAMPIN [Concomitant]
  4. OXYCODONE [Concomitant]
  5. INSULIN REGULAR [Concomitant]
  6. INSULIN LISPRO [Concomitant]
  7. MAG SULFATE [Concomitant]
  8. MAG OXIDE [Concomitant]

REACTIONS (1)
  - Blood creatinine increased [None]
